FAERS Safety Report 8361574-1 (Version None)
Quarter: 2012Q2

REPORT INFORMATION
  Report Type: 
  Country: None (occurrence: None)
  Receive Date: 20120515
  Receipt Date: 20120511
  Transmission Date: 20120825
  Serious: Yes (Other)
  Sender: FDA-Public Use
  Company Number: US-PFIZER INC-2012105423

PATIENT
  Sex: Female
  Weight: 61.7 kg

DRUGS (2)
  1. LYRICA [Suspect]
     Indication: FIBROMYALGIA
     Dosage: 150 MG, DAILY
     Dates: start: 20120401, end: 20120427
  2. LYRICA [Suspect]
     Indication: NEURALGIA

REACTIONS (6)
  - FEELING ABNORMAL [None]
  - ABDOMINAL DISTENSION [None]
  - EXERCISE TOLERANCE DECREASED [None]
  - DRY MOUTH [None]
  - DIZZINESS [None]
  - MUSCULAR WEAKNESS [None]
